FAERS Safety Report 14566487 (Version 2)
Quarter: 2018Q2

REPORT INFORMATION
  Report Type: Spontaneous
  Country: US (occurrence: US)
  Receive Date: 20180223
  Receipt Date: 20180423
  Transmission Date: 20180711
  Serious: No
  Sender: FDA-Public Use
  Company Number: US-009507513-1802USA004196

PATIENT
  Sex: Female

DRUGS (1)
  1. MAXALT-MLT [Suspect]
     Active Substance: RIZATRIPTAN BENZOATE
     Dosage: 1 DF, UNK
     Route: 048

REACTIONS (2)
  - No adverse event [Unknown]
  - Expired product administered [Unknown]

NARRATIVE: CASE EVENT DATE: 20180207
